FAERS Safety Report 8589156-7 (Version None)
Quarter: 2012Q3

REPORT INFORMATION
  Report Type: 
  Country: None (occurrence: None)
  Receive Date: 20120813
  Receipt Date: 20120808
  Transmission Date: 20120928
  Serious: No
  Sender: FDA-Public Use
  Company Number: US-PFIZER INC-2012193723

PATIENT
  Age: 41 Year
  Sex: Female
  Weight: 61.224 kg

DRUGS (3)
  1. ADVIL CONGESTION RELIEF [Suspect]
     Indication: SINUS CONGESTION
     Dosage: 200/10 MG, AS NEEDED
     Route: 048
     Dates: start: 20120807
  2. ADVIL CONGESTION RELIEF [Suspect]
     Indication: SINUS HEADACHE
  3. ADVIL CONGESTION RELIEF [Suspect]
     Indication: HEADACHE

REACTIONS (1)
  - DRUG INEFFECTIVE [None]
